FAERS Safety Report 14969076 (Version 3)
Quarter: 2019Q1

REPORT INFORMATION
  Report Type: Spontaneous
  Country: US (occurrence: US)
  Receive Date: 20180604
  Receipt Date: 20190314
  Transmission Date: 20190417
  Serious: Yes (Other)
  Sender: FDA-Public Use
  Company Number: US-SA-2018SA146791

PATIENT
  Age: 63 Year
  Sex: Male

DRUGS (1)
  1. CAPRELSA [Suspect]
     Active Substance: VANDETANIB
     Indication: THYROID CANCER
     Dosage: 3 DF, QD
     Route: 048
     Dates: start: 20160310, end: 20180501

REACTIONS (2)
  - Blood calcitonin increased [Unknown]
  - Carcinoembryonic antigen increased [Unknown]
